FAERS Safety Report 6541190-4 (Version None)
Quarter: 2010Q1

REPORT INFORMATION
  Report Type: 
  Country: None (occurrence: None)
  Receive Date: 20100118
  Receipt Date: 20100113
  Transmission Date: 20100710
  Serious: Yes (Life-Threatening)
  Sender: FDA-Public Use
  Company Number: B0625160A

PATIENT
  Age: 48 Year
  Sex: Female
  Weight: 135 kg

DRUGS (6)
  1. ROSIGLITAZONE [Suspect]
     Route: 048
     Dates: end: 20060218
  2. LISINOPRIL [Concomitant]
     Dosage: 20MG PER DAY
     Route: 048
  3. VENLAFAXINE [Concomitant]
     Route: 048
  4. METFORMIN [Concomitant]
     Dosage: 3000MG PER DAY
     Route: 048
  5. SIMVASTATIN [Concomitant]
     Dosage: 40MG PER DAY
     Route: 048
  6. LORAZEPAM [Concomitant]
     Dosage: 1MG PER DAY
     Route: 048

REACTIONS (5)
  - CARDIAC FAILURE [None]
  - COR PULMONALE [None]
  - DYSPNOEA [None]
  - LEFT VENTRICULAR FAILURE [None]
  - PULMONARY OEDEMA [None]
